FAERS Safety Report 7679817-6 (Version None)
Quarter: 2011Q3

REPORT INFORMATION
  Report Type: 
  Country: None (occurrence: None)
  Receive Date: 20110812
  Receipt Date: 20110711
  Transmission Date: 20111222
  Serious: No
  Sender: FDA-Public Use
  Company Number: US-BAYER-2011-060986

PATIENT
  Age: 89 Year
  Sex: Male
  Weight: 86 kg

DRUGS (2)
  1. ALEVE (CAPLET) [Suspect]
     Indication: ARTHRITIS
     Dosage: 1 DF, BID
     Dates: start: 20110614, end: 20110728
  2. ALLOPURINOL [Concomitant]

REACTIONS (1)
  - NO ADVERSE EVENT [None]
